FAERS Safety Report 5741781-4 (Version None)
Quarter: 2008Q2

REPORT INFORMATION
  Report Type: 
  Country: None (occurrence: None)
  Receive Date: 20080519
  Receipt Date: 20080506
  Transmission Date: 20081010
  Serious: Yes (Hospitalization, Other)
  Sender: FDA-Public Use
  Company Number: DE-BAYER-200813581GPV

PATIENT
  Age: 47 Year
  Sex: Female

DRUGS (3)
  1. BETAFERON [Suspect]
     Indication: MULTIPLE SCLEROSIS
     Route: 058
     Dates: end: 20071001
  2. COTRIM DS [Concomitant]
     Indication: DRUG USE FOR UNKNOWN INDICATION
  3. NOVALDIN INJ [Concomitant]
     Indication: DRUG USE FOR UNKNOWN INDICATION

REACTIONS (7)
  - ABDOMINAL PAIN LOWER [None]
  - DRUG SPECIFIC ANTIBODY PRESENT [None]
  - EXTREMITY NECROSIS [None]
  - GRANULOMA [None]
  - INJECTION SITE ABSCESS [None]
  - SKIN ULCER [None]
  - URINARY TRACT INFECTION [None]
